FAERS Safety Report 18370922 (Version 1)
Quarter: 2020Q4

REPORT INFORMATION
  Report Type: Spontaneous
  Country: US (occurrence: US)
  Receive Date: 20201012
  Receipt Date: 20201012
  Transmission Date: 20210114
  Serious: No
  Sender: FDA-Public Use
  Company Number: US-TOLMAR, INC.-20US023096

PATIENT
  Age: 48 Year
  Sex: Female

DRUGS (3)
  1. MULTIVITAMINS [VITAMINS NOS] [Concomitant]
     Active Substance: VITAMINS
     Indication: PRODUCT USED FOR UNKNOWN INDICATION
     Dosage: UNK
     Route: 065
  2. ELIGARD [Suspect]
     Active Substance: LEUPROLIDE ACETATE
     Indication: UTERINE LEIOMYOMA
  3. ELIGARD [Suspect]
     Active Substance: LEUPROLIDE ACETATE
     Indication: MENSTRUAL DISORDER
     Dosage: 45 MG, SINGLE
     Route: 030
     Dates: start: 20200928, end: 20200928

REACTIONS (3)
  - Wrong technique in product usage process [Unknown]
  - Off label use [Unknown]
  - Incorrect route of product administration [Unknown]

NARRATIVE: CASE EVENT DATE: 20200928
